FAERS Safety Report 4459841-7 (Version None)
Quarter: 2004Q3

REPORT INFORMATION
  Report Type: 
  Country: None (occurrence: None)
  Receive Date: 20040928
  Receipt Date: 20030905
  Transmission Date: 20050211
  Serious: No
  Sender: FDA-Public Use
  Company Number: US-BRISTOL-MYERS SQUIBB COMPANY-12376620

PATIENT
  Age: 9 Month
  Sex: Female

DRUGS (1)
  1. TRIMOX [Suspect]
     Route: 048
     Dates: start: 20030905

REACTIONS (1)
  - RASH [None]
